FAERS Safety Report 8602985-6 (Version None)
Quarter: 2012Q3

REPORT INFORMATION
  Report Type: 
  Country: None (occurrence: None)
  Receive Date: 20120817
  Receipt Date: 20120611
  Transmission Date: 20120928
  Serious: No
  Sender: FDA-Public Use
  Company Number: US-GLAXOSMITHKLINE-A0968232A

PATIENT
  Age: 57 Year
  Sex: Male
  Weight: 73.2 kg

DRUGS (1)
  1. VOTRIENT [Suspect]
     Indication: RENAL CANCER
     Dosage: 800MGD PER DAY
     Route: 048

REACTIONS (5)
  - HAIR COLOUR CHANGES [None]
  - PALLOR [None]
  - DRUG INEFFECTIVE [None]
  - DRUG ADMINISTRATION ERROR [None]
  - LABORATORY TEST ABNORMAL [None]
